FAERS Safety Report 7656665-4 (Version None)
Quarter: 2011Q3

REPORT INFORMATION
  Report Type: 
  Country: None (occurrence: None)
  Receive Date: 20110804
  Receipt Date: 20110726
  Transmission Date: 20111222
  Serious: Yes (Life-Threatening)
  Sender: FDA-Public Use
  Company Number: FR-BAXTER-2011BH024693

PATIENT
  Age: 75 Year
  Sex: Female

DRUGS (5)
  1. DOXORUBICIN HCL [Suspect]
     Indication: ANGIOIMMUNOBLASTIC T-CELL LYMPHOMA
     Route: 042
     Dates: start: 20091201, end: 20110401
  2. CYCLOPHOSPHAMIDE [Suspect]
     Indication: ANGIOIMMUNOBLASTIC T-CELL LYMPHOMA
     Route: 042
     Dates: start: 20091201, end: 20110401
  3. MABTHERA [Suspect]
     Indication: ANGIOIMMUNOBLASTIC T-CELL LYMPHOMA
     Route: 042
     Dates: start: 20091201, end: 20110401
  4. PREDNISONE [Suspect]
     Indication: ANGIOIMMUNOBLASTIC T-CELL LYMPHOMA
     Route: 065
     Dates: start: 20091201, end: 20110401
  5. VINCRISTINE SULFATE [Suspect]
     Indication: ANGIOIMMUNOBLASTIC T-CELL LYMPHOMA
     Route: 042
     Dates: start: 20091201, end: 20110401

REACTIONS (1)
  - PROGRESSIVE MULTIFOCAL LEUKOENCEPHALOPATHY [None]
